FAERS Safety Report 25178135 (Version 1)
Quarter: 2025Q2

REPORT INFORMATION
  Report Type: Spontaneous
  Country: US (occurrence: None)
  Receive Date: 20250409
  Receipt Date: 20250409
  Transmission Date: 20250717
  Serious: Yes (Death, Hospitalization)
  Sender: FDA-CTU
  Company Number: None

PATIENT
  Age: 75 Year
  Sex: Male
  Weight: 69.7 kg

DRUGS (4)
  1. CARBOPLATIN [Suspect]
     Active Substance: CARBOPLATIN
     Dates: end: 20240102
  2. TAXOL [Suspect]
     Active Substance: PACLITAXEL
     Dates: end: 20240102
  3. ABIXABAN [Concomitant]
  4. VORICONAZOLE [Concomitant]
     Active Substance: VORICONAZOLE

REACTIONS (17)
  - Dyspnoea [None]
  - Haemoptysis [None]
  - Pyrexia [None]
  - Chills [None]
  - Nasal congestion [None]
  - Pulmonary artery occlusion [None]
  - Atrial flutter [None]
  - Pneumonia [None]
  - Pleural effusion [None]
  - Pneumothorax [None]
  - Aspergillus infection [None]
  - Hypoxia [None]
  - Hypotension [None]
  - Agitation [None]
  - Pseudomonas test positive [None]
  - Aspergillus infection [None]
  - Tachycardia [None]

NARRATIVE: CASE EVENT DATE: 20250306
